FAERS Safety Report 9769293 (Version 3)
Quarter: 2013Q4

REPORT INFORMATION
  Report Type: Spontaneous
  Country: DE (occurrence: DE)
  Receive Date: 20131218
  Receipt Date: 20131224
  Transmission Date: 20140711
  Serious: Yes (Other)
  Sender: FDA-Public Use
  Company Number: PHHY2013DE114469

PATIENT
  Sex: Male

DRUGS (2)
  1. GLIVEC [Suspect]
     Dosage: 100 MG, UNK
  2. MARCUMAR [Concomitant]
     Dosage: UNK UKN, UNK

REACTIONS (9)
  - Left ventricular hypertrophy [Unknown]
  - Mitral valve incompetence [Unknown]
  - Tricuspid valve incompetence [Unknown]
  - Atrial fibrillation [Recovering/Resolving]
  - Asthenia [Recovering/Resolving]
  - Listless [Recovering/Resolving]
  - Heart rate irregular [Recovering/Resolving]
  - Supraventricular extrasystoles [Recovering/Resolving]
  - Low density lipoprotein increased [Recovering/Resolving]
